FAERS Safety Report 4661461-6 (Version None)
Quarter: 2005Q2

REPORT INFORMATION
  Report Type: 
  Country: None (occurrence: None)
  Receive Date: 20050513
  Receipt Date: 19990726
  Transmission Date: 20051028
  Serious: Yes (Life-Threatening, Hospitalization)
  Sender: FDA-Public Use
  Company Number: DE-GLAXOSMITHKLINE-D0003620A

PATIENT
  Age: 63 Year
  Sex: Female
  Weight: 60 kg

DRUGS (8)
  1. TRACRIUM [Suspect]
     Dosage: 2.5ML SINGLE DOSE
     Route: 042
     Dates: start: 19990130, end: 19990130
  2. RANITIDINE [Suspect]
     Indication: PROPHYLAXIS
     Dosage: 150MG PER DAY
     Route: 048
     Dates: start: 19990127, end: 19990129
  3. DIPYRONE TAB [Suspect]
     Route: 048
     Dates: end: 19990118
  4. DIPYRONE TAB [Suspect]
     Route: 048
     Dates: start: 19990123, end: 19990123
  5. TRAMADOL HCL [Suspect]
     Route: 048
     Dates: start: 19990118, end: 19990118
  6. TRAMADOL HCL [Suspect]
     Dates: start: 19990121, end: 19990123
  7. OXAZEPAM [Suspect]
     Indication: SEDATION
     Route: 048
     Dates: start: 19990118, end: 19990125
  8. MULTIPLE MEDICATIONS [Concomitant]

REACTIONS (3)
  - MUCOSAL EROSION [None]
  - STEVENS-JOHNSON SYNDROME [None]
  - TOXIC EPIDERMAL NECROLYSIS [None]
